FAERS Safety Report 16020523 (Version 2)
Quarter: 2019Q2

REPORT INFORMATION
  Report Type: Spontaneous
  Country: US (occurrence: US)
  Receive Date: 20190301
  Receipt Date: 20190517
  Transmission Date: 20190711
  Serious: Yes (Death)
  Sender: FDA-Public Use
  Company Number: US-ABBVIE-19K-163-2685911-00

PATIENT
  Age: 61 Year
  Sex: Female
  Weight: 84.6 kg

DRUGS (4)
  1. OMEPRAZOLE. [Concomitant]
     Active Substance: OMEPRAZOLE
     Indication: PRODUCT USED FOR UNKNOWN INDICATION
     Dosage: CUT DOWN TO 20 MG
  2. GABAPENTIN. [Concomitant]
     Active Substance: GABAPENTIN
     Indication: PRODUCT USED FOR UNKNOWN INDICATION
     Dosage: AT BEDTIME
  3. TRAZODONE [Concomitant]
     Active Substance: TRAZODONE HYDROCHLORIDE
     Indication: PRODUCT USED FOR UNKNOWN INDICATION
     Dosage: AT BED TIME
  4. MAVYRET [Suspect]
     Active Substance: GLECAPREVIR\PIBRENTASVIR
     Indication: CHRONIC HEPATITIS C
     Dosage: 300/120 MG  AT 10 AM
     Route: 048
     Dates: start: 20180125, end: 20180326

REACTIONS (19)
  - Acute kidney injury [Fatal]
  - Jaundice [Unknown]
  - Hypotension [Unknown]
  - Ascites [Unknown]
  - Pain [Unknown]
  - Insomnia [Unknown]
  - Weight increased [Unknown]
  - Asterixis [Unknown]
  - Encephalopathy [Fatal]
  - Pruritus [Unknown]
  - Abdominal pain [Fatal]
  - Acute hepatic failure [Fatal]
  - Intra-abdominal fluid collection [Unknown]
  - Shock [Fatal]
  - Back pain [Unknown]
  - Vomiting [Unknown]
  - Insomnia [Unknown]
  - Abdominal distension [Unknown]
  - Diarrhoea [Unknown]

NARRATIVE: CASE EVENT DATE: 2018
